FAERS Safety Report 6751149-X (Version None)
Quarter: 2010Q2

REPORT INFORMATION
  Report Type: 
  Country: None (occurrence: None)
  Receive Date: 20100602
  Receipt Date: 20100528
  Transmission Date: 20101027
  Serious: Yes (Hospitalization)
  Sender: FDA-Public Use
  Company Number: FR-BRISTOL-MYERS SQUIBB COMPANY-15113459

PATIENT
  Age: 34 Year
  Sex: Male

DRUGS (8)
  1. PERFALGAN IV [Suspect]
     Indication: PYREXIA
     Route: 042
     Dates: start: 20100413, end: 20100425
  2. AMOXICILLIN [Suspect]
     Route: 042
     Dates: start: 20100413, end: 20100414
  3. ROCEPHIN [Suspect]
     Route: 042
     Dates: start: 20100414, end: 20100423
  4. VANCOCIN HYDROCHLORIDE [Suspect]
     Route: 042
     Dates: start: 20100415, end: 20100424
  5. GENTALLINE [Suspect]
     Indication: MENINGITIS PNEUMOCOCCAL
     Route: 042
     Dates: start: 20100414, end: 20100415
  6. TEGELINE [Suspect]
     Indication: PNEUMOCOCCAL BACTERAEMIA
     Route: 042
     Dates: start: 20100414, end: 20100415
  7. SOLU-MEDROL [Suspect]
     Indication: ERYTHEMA
     Dosage: 10 MG 4 TIMES PERDAY FEOM 16 TO 18APR10.
     Route: 042
     Dates: start: 20100424, end: 20100425
  8. SOLU-MEDROL [Suspect]
     Indication: MENINGITIS
     Dosage: 10 MG 4 TIMES PERDAY FEOM 16 TO 18APR10.
     Route: 042
     Dates: start: 20100424, end: 20100425

REACTIONS (2)
  - PYREXIA [None]
  - TOXIC SKIN ERUPTION [None]
